FAERS Safety Report 5308134-4 (Version None)
Quarter: 2007Q2

REPORT INFORMATION
  Report Type: 
  Country: None (occurrence: None)
  Receive Date: 20070426
  Receipt Date: 20070418
  Transmission Date: 20071010
  Serious: Yes (Other)
  Sender: FDA-Public Use
  Company Number: PHNU2007DE01564

PATIENT
  Sex: Male
  Weight: 96 kg

DRUGS (1)
  1. ZOMETA [Suspect]
     Indication: METASTASES TO BONE
     Dosage: UNK, TIW
     Route: 042
     Dates: start: 20040901, end: 20060101

REACTIONS (2)
  - DENTAL OPERATION [None]
  - OSTEONECROSIS [None]
